FAERS Safety Report 6714134-X (Version None)
Quarter: 2010Q2

REPORT INFORMATION
  Report Type: 
  Country: None (occurrence: None)
  Receive Date: 20100506
  Receipt Date: 20100105
  Transmission Date: 20101027
  Serious: Yes (Other)
  Sender: FDA-Public Use
  Company Number: BR-PFIZER INC-2009311376

PATIENT
  Age: 86 Year
  Sex: Female
  Weight: 51 kg

DRUGS (12)
  1. XALATAN [Suspect]
     Indication: GLAUCOMA
     Dosage: 2 GTT, 1X/DAY
     Route: 047
     Dates: start: 20091201
  2. XALATAN [Suspect]
     Indication: CATARACT
  3. SIMVASTATIN [Concomitant]
     Dosage: 20 MG, UNK
  4. CILOSTAZOL [Concomitant]
     Dosage: 50 MG, UNK
  5. VINPOCETINE [Concomitant]
     Dosage: 5 MG, UNK
  6. HYDROCHLOROTHIAZIDE [Concomitant]
     Indication: BLOOD PRESSURE
     Dosage: 25 MG, 1X/DAY, 1 TABLET
  7. OXYBUTYNIN [Concomitant]
     Indication: URINARY INCONTINENCE
     Dosage: 5 MG, UNK
  8. VALERIAN EXTRACT [Concomitant]
     Indication: SLEEP DISORDER
     Dosage: 200 MG, UNK
  9. OMEPRAZOLE [Concomitant]
     Dosage: UNK
  10. AMLODIPINE BESYLATE/VALSARTAN [Concomitant]
     Dosage: 160/5MG
  11. CARVEDILOL [Concomitant]
     Dosage: 25 MG, 1X/DAY, 1 TABLET
  12. CALCIUM CARBONATE/COLECALCIFEROL [Concomitant]
     Dosage: 600MG/200UI

REACTIONS (8)
  - BLOOD PRESSURE DECREASED [None]
  - BLOOD PRESSURE INCREASED [None]
  - DIZZINESS [None]
  - FEELING COLD [None]
  - HYPERHIDROSIS [None]
  - MALAISE [None]
  - PALLOR [None]
  - VISION BLURRED [None]
